FAERS Safety Report 8045769-2 (Version None)
Quarter: 2012Q1

REPORT INFORMATION
  Report Type: 
  Country: None (occurrence: None)
  Receive Date: 20120113
  Receipt Date: 20120109
  Transmission Date: 20120608
  Serious: Yes (Other)
  Sender: FDA-Public Use
  Company Number: PHHY2011DE46633

PATIENT
  Sex: Female
  Weight: 60 kg

DRUGS (2)
  1. CITALOPRAM [Concomitant]
     Indication: DEPRESSION
     Dosage: 20 MG, UNK
     Dates: start: 20080609
  2. EXTAVIA [Suspect]
     Indication: MULTIPLE SCLEROSIS
     Dosage: 0.3 MG QOD
     Route: 058
     Dates: start: 20091221

REACTIONS (1)
  - INJECTION SITE CELLULITIS [None]
